FAERS Safety Report 24273213 (Version 1)
Quarter: 2024Q3

REPORT INFORMATION
  Report Type: Spontaneous
  Country: US (occurrence: US)
  Receive Date: 20240902
  Receipt Date: 20240902
  Transmission Date: 20241017
  Serious: No
  Sender: BRISTOL MYERS SQUIBB
  Company Number: US-EXELIXIS-CABO-24081001

PATIENT
  Sex: Male

DRUGS (7)
  1. OPDIVO [Suspect]
     Active Substance: NIVOLUMAB
     Indication: Renal cell carcinoma
  2. OPDIVO [Suspect]
     Active Substance: NIVOLUMAB
     Indication: Metastases to lung
  3. CABOMETYX [Suspect]
     Active Substance: CABOZANTINIB S-MALATE
     Indication: Renal cell carcinoma
  4. CABOMETYX [Suspect]
     Active Substance: CABOZANTINIB S-MALATE
     Indication: Metastases to lung
  5. LENVATINIB [Suspect]
     Active Substance: LENVATINIB
     Indication: Renal cell carcinoma
     Route: 048
     Dates: start: 20240818
  6. LENVATINIB [Suspect]
     Active Substance: LENVATINIB
     Indication: Metastases to lung
  7. AFINITOR [Concomitant]
     Active Substance: EVEROLIMUS
     Indication: Product used for unknown indication

REACTIONS (2)
  - Diarrhoea [Not Recovered/Not Resolved]
  - Blood pressure increased [Not Recovered/Not Resolved]
